FAERS Safety Report 6163991-7 (Version None)
Quarter: 2009Q2

REPORT INFORMATION
  Report Type: 
  Country: None (occurrence: None)
  Receive Date: 20090422
  Receipt Date: 20090414
  Transmission Date: 20091009
  Serious: Yes (Other)
  Sender: FDA-Public Use
  Company Number: DZ-PFIZER INC-2009194625

PATIENT

DRUGS (4)
  1. PREGABALIN [Suspect]
     Indication: POLYNEUROPATHY
     Dosage: 50 MG, 3X/DAY
     Route: 048
     Dates: start: 20080920, end: 20090302
  2. INSULIN [Concomitant]
     Dosage: UNK
  3. ASPEGIC 1000 [Concomitant]
     Dosage: UNK
     Route: 048
  4. PERINDOPRIL ERBUMINE [Concomitant]
     Dosage: UNK
     Route: 048

REACTIONS (1)
  - CHILAIDITI'S SYNDROME [None]
